FAERS Safety Report 8330284-9 (Version None)
Quarter: 2012Q2

REPORT INFORMATION
  Report Type: 
  Country: None (occurrence: None)
  Receive Date: 20120502
  Receipt Date: 20120427
  Transmission Date: 20120825
  Serious: Yes (Other)
  Sender: FDA-Public Use
  Company Number: PHHO2012IT006524

PATIENT

DRUGS (3)
  1. LETROZOLE [Suspect]
     Indication: BONE LOSS
  2. ZOMETA [Suspect]
     Indication: BONE LOSS
  3. TRIPTORELIN [Suspect]

REACTIONS (1)
  - HYPERTRANSAMINASAEMIA [None]
